FAERS Safety Report 5783181-7 (Version None)
Quarter: 2008Q2

REPORT INFORMATION
  Report Type: 
  Country: None (occurrence: None)
  Receive Date: 20080619
  Receipt Date: 20080610
  Transmission Date: 20081010
  Serious: Yes (Death)
  Sender: FDA-Public Use
  Company Number: US023073

PATIENT
  Age: 81 Year
  Sex: Male
  Weight: 250 kg

DRUGS (7)
  1. ACTIQ [Suspect]
     Indication: CANCER PAIN
     Dosage: 200 UG PRN BUCCAL
     Route: 002
     Dates: start: 20080318, end: 20080320
  2. DURAGESIC-100 [Concomitant]
  3. IRBESARTAN [Concomitant]
  4. VERAPAMIL [Concomitant]
  5. DIGOXIN [Concomitant]
  6. FUROSEMIDE [Concomitant]
  7. VENTOLINE [Concomitant]

REACTIONS (4)
  - APTYALISM [None]
  - DRUG INEFFECTIVE [None]
  - MALIGNANT NEOPLASM PROGRESSION [None]
  - PHARMACEUTICAL PRODUCT COMPLAINT [None]
